FAERS Safety Report 5129477-3 (Version None)
Quarter: 2006Q4

REPORT INFORMATION
  Report Type: 
  Country: None (occurrence: None)
  Receive Date: 20061018
  Receipt Date: 20061005
  Transmission Date: 20070319
  Serious: Yes (Disabling)
  Sender: FDA-Public Use
  Company Number: 2006PK02041

PATIENT
  Age: 62 Year
  Sex: Female
  Weight: 60 kg

DRUGS (3)
  1. TAMOXIFEN CITRATE [Suspect]
     Indication: BREAST CANCER IN SITU
     Route: 048
     Dates: start: 20030701, end: 20050801
  2. COZAAR [Concomitant]
     Route: 048
     Dates: start: 20030408, end: 20050801
  3. MICARDIS [Concomitant]
     Route: 048
     Dates: start: 20051201

REACTIONS (1)
  - MYELODYSPLASTIC SYNDROME [None]
